FAERS Safety Report 7224459-X (Version None)
Quarter: 2011Q1

REPORT INFORMATION
  Report Type: 
  Country: None (occurrence: None)
  Receive Date: 20110113
  Receipt Date: 20110110
  Transmission Date: 20110831
  Serious: No
  Sender: FDA-Public Use
  Company Number: US-PFIZER INC-2011006911

PATIENT
  Sex: Female
  Weight: 46 kg

DRUGS (1)
  1. TRIAZOLAM [Suspect]
     Indication: INSOMNIA
     Dosage: 125 MG, 1X/DAY
     Route: 048
     Dates: start: 20110107

REACTIONS (1)
  - DRUG INEFFECTIVE [None]
